FAERS Safety Report 22260567 (Version 1)
Quarter: 2023Q2

REPORT INFORMATION
  Report Type: Spontaneous
  Country: JP (occurrence: None)
  Receive Date: 20230427
  Receipt Date: 20230427
  Transmission Date: 20230722
  Serious: Yes (Other)
  Sender: FDA-Public Use
  Company Number: 2023A093671

PATIENT
  Sex: Female

DRUGS (2)
  1. TAGRISSO [Suspect]
     Active Substance: OSIMERTINIB
     Indication: Non-small cell lung cancer
     Route: 048
  2. TAGRISSO [Suspect]
     Active Substance: OSIMERTINIB
     Indication: Non-small cell lung cancer
     Route: 048
     Dates: start: 201912

REACTIONS (7)
  - Carcinoembryonic antigen increased [Unknown]
  - Cardiac dysfunction [Unknown]
  - Hepatic function abnormal [Unknown]
  - Haemorrhage subcutaneous [Unknown]
  - Skin atrophy [Unknown]
  - Skin haemorrhage [Unknown]
  - Mass [Unknown]

NARRATIVE: CASE EVENT DATE: 20220101
